FAERS Safety Report 6215597-9 (Version None)
Quarter: 2009Q2

REPORT INFORMATION
  Report Type: 
  Country: None (occurrence: None)
  Receive Date: 20090603
  Receipt Date: 20090603
  Transmission Date: 20091009
  Serious: No
  Sender: FDA-Public Use
  Company Number: None

PATIENT
  Sex: Male
  Weight: 78.4723 kg

DRUGS (1)
  1. CRESTOR [Suspect]
     Dosage: 20MG DAILY
     Dates: start: 20071201

REACTIONS (1)
  - WEIGHT DECREASED [None]
